FAERS Safety Report 7078455-6 (Version None)
Quarter: 2010Q4

REPORT INFORMATION
  Report Type: 
  Country: None (occurrence: None)
  Receive Date: 20101102
  Receipt Date: 20101019
  Transmission Date: 20110411
  Serious: Yes (Other)
  Sender: FDA-Public Use
  Company Number: PHHY2010US70909

PATIENT
  Sex: Male

DRUGS (1)
  1. RECLAST [Suspect]
     Dosage: 5 MG , ONCE PER YEAR
     Route: 042

REACTIONS (3)
  - BRADYCARDIA [None]
  - FEELING ABNORMAL [None]
  - HYPERHIDROSIS [None]
